FAERS Safety Report 14030471 (Version 1)
Quarter: 2017Q4

REPORT INFORMATION
  Report Type: Spontaneous
  Country: US (occurrence: US)
  Receive Date: 20171002
  Receipt Date: 20171002
  Transmission Date: 20180321
  Serious: No
  Sender: FDA-Public Use
  Company Number: US-MAYNE PHARMA-2016MYN002255

PATIENT
  Sex: Male

DRUGS (1)
  1. FENTANYL. [Suspect]
     Active Substance: FENTANYL
     Indication: PAIN
     Dosage: 1 PATCH, EVERY 72 HOURS
     Route: 062
     Dates: start: 201608

REACTIONS (6)
  - Panic attack [Unknown]
  - Anxiety [Unknown]
  - Product adhesion issue [Unknown]
  - Malaise [Unknown]
  - Wrong technique in product usage process [Unknown]
  - Nasal congestion [Unknown]

NARRATIVE: CASE EVENT DATE: 2016
